FAERS Safety Report 4810716-0 (Version None)
Quarter: 2005Q4

REPORT INFORMATION
  Report Type: 
  Country: None (occurrence: None)
  Receive Date: 20051026
  Receipt Date: 20051005
  Transmission Date: 20060501
  Serious: Yes (Other)
  Sender: FDA-Public Use
  Company Number: JP-MERCK-0510USA04910

PATIENT
  Sex: Female
  Weight: 1 kg

DRUGS (1)
  1. INDOCIN I.V. [Suspect]
     Indication: PATENT DUCTUS ARTERIOSUS
     Route: 042

REACTIONS (4)
  - GASTROINTESTINAL NECROSIS [None]
  - GASTROINTESTINAL PERFORATION [None]
  - SMALL INTESTINAL STENOSIS [None]
  - VOLVULUS [None]
